FAERS Safety Report 6377063-X (Version None)
Quarter: 2009Q3

REPORT INFORMATION
  Report Type: 
  Country: None (occurrence: None)
  Receive Date: 20090925
  Receipt Date: 20090915
  Transmission Date: 20100115
  Serious: Yes (Other)
  Sender: FDA-Public Use
  Company Number: CO-PFIZER INC-2009263221

PATIENT
  Age: 48 Year

DRUGS (4)
  1. XALATAN [Suspect]
     Indication: GLAUCOMA
     Dosage: 1 GTT, 2X/DAY
     Route: 047
     Dates: start: 19910101
  2. XALATAN [Suspect]
     Indication: OCULAR HYPERTENSION
  3. TIMOLOL [Concomitant]
     Indication: GLAUCOMA
     Dosage: UNK
     Dates: start: 19960101
  4. TRAVATAN [Concomitant]

REACTIONS (3)
  - EYE IRRITATION [None]
  - NIGHTMARE [None]
  - ROTATOR CUFF REPAIR [None]
